FAERS Safety Report 6381741-6 (Version None)
Quarter: 2009Q3

REPORT INFORMATION
  Report Type: 
  Country: None (occurrence: None)
  Receive Date: 20090930
  Receipt Date: 20090921
  Transmission Date: 20100115
  Serious: Yes (Other)
  Sender: FDA-Public Use
  Company Number: PHHY2009NO37280

PATIENT
  Sex: Female

DRUGS (1)
  1. VOLTAREN [Suspect]

REACTIONS (1)
  - PETIT MAL EPILEPSY [None]
